FAERS Safety Report 20043540 (Version 2)
Quarter: 2021Q4

REPORT INFORMATION
  Report Type: Spontaneous
  Country: US (occurrence: US)
  Receive Date: 20211108
  Receipt Date: 20211114
  Transmission Date: 20220303
  Serious: No
  Sender: FDA-Public Use
  Company Number: US-ELI_LILLY_AND_COMPANY-US202111001121

PATIENT
  Sex: Female

DRUGS (1)
  1. TRULICITY [Suspect]
     Active Substance: DULAGLUTIDE
     Indication: Weight decreased
     Dosage: 0.75 MG, UNKNOWN
     Route: 065

REACTIONS (8)
  - Arthralgia [Unknown]
  - Glycosylated haemoglobin increased [Unknown]
  - Nausea [Unknown]
  - Decreased appetite [Unknown]
  - Injection site pain [Unknown]
  - Wrong technique in product usage process [Unknown]
  - Product dose omission issue [Unknown]
  - Off label use [Unknown]
